FAERS Safety Report 8933342 (Version 6)
Quarter: 2015Q1

REPORT INFORMATION
  Report Type: Spontaneous
  Country: US (occurrence: US)
  Receive Date: 20121128
  Receipt Date: 20150319
  Transmission Date: 20150721
  Serious: Yes (Hospitalization, Disabling, Other)
  Sender: FDA-Public Use
  Company Number: US-009507513-1210USA008266

PATIENT
  Sex: Female
  Weight: 69.84 kg

DRUGS (9)
  1. IBANDRONATE SODIUM. [Suspect]
     Active Substance: IBANDRONATE SODIUM
     Indication: OSTEOPENIA
  2. ALENDRONATE SODIUM. [Suspect]
     Active Substance: ALENDRONATE SODIUM
     Indication: OSTEOPENIA
  3. BONIVA [Suspect]
     Active Substance: IBANDRONATE SODIUM
     Indication: OSTEOPOROSIS
     Dosage: UNK
     Dates: start: 200603, end: 201009
  4. FOSAMAX [Suspect]
     Active Substance: ALENDRONATE SODIUM
     Indication: OSTEOPOROSIS
  5. BONIVA [Suspect]
     Active Substance: IBANDRONATE SODIUM
     Indication: OSTEOPENIA
  6. FOSAMAX [Suspect]
     Active Substance: ALENDRONATE SODIUM
     Indication: OSTEOPENIA
     Dosage: 70 MG, UNK
     Route: 048
     Dates: start: 200104, end: 200602
  7. IBANDRONATE SODIUM. [Suspect]
     Active Substance: IBANDRONATE SODIUM
     Indication: OSTEOPOROSIS
     Dosage: UNK
     Dates: start: 2001, end: 2010
  8. FOSAMAX [Suspect]
     Active Substance: ALENDRONATE SODIUM
     Indication: OSTEOPENIA
  9. ALENDRONATE SODIUM. [Suspect]
     Active Substance: ALENDRONATE SODIUM
     Indication: OSTEOPOROSIS
     Dosage: UNK
     Dates: start: 2001, end: 2010

REACTIONS (17)
  - Low turnover osteopathy [Not Recovered/Not Resolved]
  - Stress fracture [Unknown]
  - Anaemia postoperative [Unknown]
  - Nephrolithiasis [Unknown]
  - Granuloma [Unknown]
  - Polypectomy [Unknown]
  - Anxiety [Unknown]
  - Lithotripsy [Unknown]
  - Osteoporosis [Not Recovered/Not Resolved]
  - Intramedullary rod insertion [Unknown]
  - Iron deficiency anaemia [Unknown]
  - Femur fracture [Unknown]
  - Pulmonary hypertension [Unknown]
  - Mammoplasty [Unknown]
  - Rosacea [Unknown]
  - Stress fracture [Unknown]
  - Stress fracture [Unknown]

NARRATIVE: CASE EVENT DATE: 2001
